FAERS Safety Report 7978731-6 (Version None)
Quarter: 2011Q4

REPORT INFORMATION
  Report Type: 
  Country: None (occurrence: None)
  Receive Date: 20111207
  Receipt Date: 20111202
  Transmission Date: 20120403
  Serious: Yes (Hospitalization)
  Sender: FDA-Public Use
  Company Number: 2011SP050176

PATIENT
  Age: 65 Year
  Sex: Male

DRUGS (25)
  1. HYDROCODONE BITARTRATE [Concomitant]
  2. FISH OIL [Concomitant]
  3. VITAMIN C [Concomitant]
  4. LIPITOR [Concomitant]
  5. ACETAMINOPHEN [Concomitant]
  6. HYDROXIZINE [Concomitant]
  7. VITAMIN C [Concomitant]
  8. KEPPRA [Concomitant]
  9. NEXIUM [Concomitant]
  10. ATORVASTATIN CALCIUM [Concomitant]
  11. MULTI-VITAMIN [Concomitant]
  12. VITAMIN B COMPLEX CAP [Concomitant]
  13. LEVETIRACETAM [Concomitant]
  14. TAMSULOSIN HCL [Concomitant]
  15. VICODIN [Concomitant]
  16. FLOMAX [Concomitant]
  17. GLUCOSAMINE [Concomitant]
  18. DEXAMETHASONE [Concomitant]
  19. ACETAMINOPHEN [Concomitant]
  20. TEMODAR [Suspect]
     Indication: GLIOBLASTOMA MULTIFORME
     Dosage: 75 MG/M2;QD;IV, 150 MG/M2;QD;IV 100MG/M2; QD; PO
     Route: 042
     Dates: start: 20110606, end: 20110718
  21. TEMODAR [Suspect]
     Indication: GLIOBLASTOMA MULTIFORME
     Dosage: 75 MG/M2;QD;IV, 150 MG/M2;QD;IV 100MG/M2; QD; PO
     Route: 042
     Dates: start: 20110927, end: 20111002
  22. TEMODAR [Suspect]
     Indication: GLIOBLASTOMA MULTIFORME
     Dosage: 75 MG/M2;QD;IV, 150 MG/M2;QD;IV 100MG/M2; QD; PO
     Route: 042
     Dates: start: 20111027, end: 20111031
  23. TEMODAR [Suspect]
     Indication: GLIOBLASTOMA MULTIFORME
     Dosage: 75 MG/M2;QD;IV, 150 MG/M2;QD;IV 100MG/M2; QD; PO
     Route: 042
     Dates: start: 20110823, end: 20110827
  24. ESOMEPRAZOLE MAGNESIUM [Concomitant]
  25. SULFAMETHOXAZOLE AND TRIMETHOPRIM [Concomitant]

REACTIONS (7)
  - SYNCOPE [None]
  - FALL [None]
  - HEAD INJURY [None]
  - PULMONARY EMBOLISM [None]
  - DYSPNOEA [None]
  - PULMONARY THROMBOSIS [None]
  - PLATELET COUNT DECREASED [None]
